FAERS Safety Report 8455041-4 (Version None)
Quarter: 2012Q2

REPORT INFORMATION
  Report Type: 
  Country: None (occurrence: None)
  Receive Date: 20120613
  Receipt Date: 20120611
  Transmission Date: 20120825
  Serious: Yes (Hospitalization)
  Sender: FDA-Public Use
  Company Number: 2012133911

PATIENT
  Age: 73 Year
  Sex: Female

DRUGS (10)
  1. NEOSPORIN NASAL DROPS (METHOXAMINE HYDROCHLORIDE, NEOMYCIN SULFATE, PO [Concomitant]
  2. LEXAPRO [Concomitant]
  3. GEMZAR [Concomitant]
  4. METOPROLOL TARTRATE [Concomitant]
  5. ALBUTEROL [Concomitant]
  6. DITROPAN [Concomitant]
  7. PREDNISONE TAB [Concomitant]
  8. LIPITOR [Concomitant]
  9. DALTEPARIN SODIUM [Suspect]
     Indication: DEEP VEIN THROMBOSIS
     Dosage: 12500 IU, SUBCUTANEOUS
     Route: 058
     Dates: start: 20091204
  10. ADVAIR HFA [Concomitant]

REACTIONS (7)
  - HAEMOGLOBIN DECREASED [None]
  - METASTASES TO CENTRAL NERVOUS SYSTEM [None]
  - ALTERED STATE OF CONSCIOUSNESS [None]
  - PLATELET COUNT DECREASED [None]
  - TROPONIN INCREASED [None]
  - NUCLEAR MAGNETIC RESONANCE IMAGING BRAIN ABNORMAL [None]
  - CEREBROVASCULAR ACCIDENT [None]
